FAERS Safety Report 7392459-5 (Version None)
Quarter: 2011Q1

REPORT INFORMATION
  Report Type: 
  Country: None (occurrence: None)
  Receive Date: 20110330
  Receipt Date: 20110330
  Transmission Date: 20110831
  Serious: No
  Sender: FDA-Public Use
  Company Number: None

PATIENT
  Age: 61 Year
  Sex: Male

DRUGS (1)
  1. REGADENOSON [Suspect]
     Indication: SURGERY
     Dates: start: 20110126, end: 20110126

REACTIONS (9)
  - SINUS DISORDER [None]
  - HEART RATE INCREASED [None]
  - PALLOR [None]
  - UNRESPONSIVE TO STIMULI [None]
  - HEADACHE [None]
  - BLOOD PRESSURE INCREASED [None]
  - TACHYCARDIA [None]
  - CHEST DISCOMFORT [None]
  - CONFUSIONAL STATE [None]
